FAERS Safety Report 22173520 (Version 1)
Quarter: 2023Q2

REPORT INFORMATION
  Report Type: Spontaneous
  Country: US (occurrence: None)
  Receive Date: 20230404
  Receipt Date: 20230404
  Transmission Date: 20230722
  Serious: Yes (Hospitalization)
  Sender: FDA-Public Use
  Company Number: 2023A072490

PATIENT
  Sex: Female
  Weight: 61.2 kg

DRUGS (2)
  1. BRILINTA [Suspect]
     Active Substance: TICAGRELOR
     Indication: Myocardial infarction
     Route: 048
     Dates: start: 20221226, end: 20230323
  2. BRILINTA [Suspect]
     Active Substance: TICAGRELOR
     Indication: Stent placement
     Route: 048
     Dates: start: 20221226, end: 20230323

REACTIONS (6)
  - Hypertension [Unknown]
  - Chest pain [Unknown]
  - Dizziness [Unknown]
  - Drug intolerance [Unknown]
  - Blood cholesterol increased [Unknown]
  - Anxiety [Unknown]
